FAERS Safety Report 7525871-1 (Version None)
Quarter: 2011Q2

REPORT INFORMATION
  Report Type: 
  Country: None (occurrence: None)
  Receive Date: 20110606
  Receipt Date: 20110601
  Transmission Date: 20111010
  Serious: Yes (Hospitalization)
  Sender: FDA-Public Use
  Company Number: A0929869A

PATIENT
  Age: 70 Year
  Sex: Female

DRUGS (7)
  1. ADVAIR DISKUS 100/50 [Suspect]
     Dosage: 1PUFF TWICE PER DAY
     Route: 055
  2. PROTONIX [Concomitant]
  3. XANAX [Concomitant]
  4. TARCEVA [Concomitant]
  5. ASCORBIC ACID [Concomitant]
  6. VITAMIN D [Concomitant]
  7. DIFLUCAN [Concomitant]

REACTIONS (4)
  - CANDIDIASIS [None]
  - THROAT TIGHTNESS [None]
  - PNEUMONIA [None]
  - CHEST PAIN [None]
